FAERS Safety Report 22619857 (Version 1)
Quarter: 2023Q2

REPORT INFORMATION
  Report Type: Spontaneous
  Country: JP (occurrence: JP)
  Receive Date: 20230620
  Receipt Date: 20230620
  Transmission Date: 20230721
  Serious: Yes (Other)
  Sender: FDA-Public Use
  Company Number: JP-TEVA-2023-JP-2898594

PATIENT
  Age: 71 Year
  Sex: Male

DRUGS (1)
  1. IMATINIB [Suspect]
     Active Substance: IMATINIB
     Indication: Chronic myeloid leukaemia
     Route: 065
     Dates: start: 202101

REACTIONS (1)
  - Oropharyngeal fistula [Recovered/Resolved]

NARRATIVE: CASE EVENT DATE: 20210501
